FAERS Safety Report 6186042-7 (Version None)
Quarter: 2009Q2

REPORT INFORMATION
  Report Type: 
  Country: None (occurrence: None)
  Receive Date: 20090511
  Receipt Date: 20090401
  Transmission Date: 20091009
  Serious: Yes (Other)
  Sender: FDA-Public Use
  Company Number: JP-MERCK-0904USA00736

PATIENT
  Age: 76 Year
  Sex: Female

DRUGS (6)
  1. PEPCID [Suspect]
     Route: 048
     Dates: start: 20010401
  2. TICLOPIDINE HYDROCHLORIDE [Concomitant]
     Route: 065
     Dates: start: 20010401
  3. ASPIRIN [Concomitant]
     Route: 065
     Dates: start: 20010401
  4. CANDESARTAN [Concomitant]
     Route: 065
     Dates: start: 20010401
  5. BENIDIPINE [Concomitant]
     Route: 065
     Dates: start: 20010401
  6. PRAVASTATIN SODIUM [Concomitant]
     Route: 065
     Dates: start: 20010401

REACTIONS (1)
  - CAROTID ARTERY STENOSIS [None]
